FAERS Safety Report 17080399 (Version 1)
Quarter: 2019Q4

REPORT INFORMATION
  Report Type: Spontaneous
  Country: BE (occurrence: BE)
  Receive Date: 20191127
  Receipt Date: 20191127
  Transmission Date: 20200122
  Serious: Yes (Disabling)
  Sender: FDA-Public Use
  Company Number: NVSC2019BE044218

PATIENT
  Age: 70 Year
  Sex: Female
  Weight: 54 kg

DRUGS (1)
  1. FEMARA [Suspect]
     Active Substance: LETROZOLE
     Indication: BREAST CANCER
     Dosage: 2.5 MG, QD
     Route: 048
     Dates: start: 20180131, end: 20190626

REACTIONS (16)
  - Dysphagia [Recovering/Resolving]
  - Disturbance in attention [Recovering/Resolving]
  - Speech disorder [Recovering/Resolving]
  - Lacrimation increased [Recovering/Resolving]
  - Paraesthesia [Recovering/Resolving]
  - Joint stiffness [Recovering/Resolving]
  - Balance disorder [Recovering/Resolving]
  - Insomnia [Recovering/Resolving]
  - Alopecia [Recovering/Resolving]
  - Cough [Recovering/Resolving]
  - Photosensitivity reaction [Recovering/Resolving]
  - Confusional state [Recovering/Resolving]
  - Hypercholesterolaemia [Recovering/Resolving]
  - Nasal crusting [Recovering/Resolving]
  - Pharyngeal swelling [Recovering/Resolving]
  - Muscle spasms [Recovering/Resolving]

NARRATIVE: CASE EVENT DATE: 20180201
